FAERS Safety Report 5278826-4 (Version None)
Quarter: 2007Q1

REPORT INFORMATION
  Report Type: 
  Country: None (occurrence: None)
  Receive Date: 20061213
  Receipt Date: 20050414
  Transmission Date: 20070707
  Serious: Yes (Hospitalization)
  Sender: FDA-Public Use
  Company Number: 2005UW05823

PATIENT
  Age: 14 Year
  Sex: Female

DRUGS (3)
  1. SEROQUEL [Suspect]
     Indication: IRRITABILITY
     Dosage: 400 MG DAILY PO   (DURATION: A FEW WEEKS)
     Route: 048
  2. SEROQUEL [Suspect]
     Indication: IRRITABILITY
     Dosage: 200 MG DAILY PO
     Route: 048
     Dates: start: 20050301
  3. SEROQUEL [Suspect]
     Indication: IRRITABILITY
     Dosage: 400 MG PO

REACTIONS (1)
  - MANIA [None]
